FAERS Safety Report 9491905 (Version 1)
Quarter: 2013Q3

REPORT INFORMATION
  Report Type: Spontaneous
  Country: CH (occurrence: CH)
  Receive Date: 20130830
  Receipt Date: 20130830
  Transmission Date: 20140515
  Serious: Yes (Other)
  Sender: FDA-Public Use
  Company Number: CH-ROCHE-1267748

PATIENT
  Sex: Male

DRUGS (6)
  1. AVASTIN [Suspect]
     Indication: RECTAL ADENOCARCINOMA
     Route: 042
     Dates: start: 20130606
  2. XELODA [Suspect]
     Indication: RECTAL ADENOCARCINOMA
     Route: 048
     Dates: start: 20100108, end: 20100618
  3. XELODA [Suspect]
     Route: 048
     Dates: start: 20100826, end: 20101230
  4. XELODA [Suspect]
     Route: 048
     Dates: start: 20110805, end: 20111125
  5. XELODA [Suspect]
     Route: 048
     Dates: start: 20130606
  6. IRINOTECAN [Concomitant]
     Route: 065
     Dates: start: 20110805, end: 20111125

REACTIONS (1)
  - Disease progression [Unknown]
